FAERS Safety Report 8449833-5 (Version None)
Quarter: 2012Q2

REPORT INFORMATION
  Report Type: 
  Country: None (occurrence: None)
  Receive Date: 20120613
  Receipt Date: 20120601
  Transmission Date: 20120825
  Serious: Yes (Other)
  Sender: FDA-Public Use
  Company Number: AUR-APL-2012-02573

PATIENT
  Age: 33 Year
  Sex: Female

DRUGS (4)
  1. MIRTAZAPINE [Suspect]
     Indication: ANXIETY DISORDER
     Dosage: (15 MG,AT BED TIME)
  2. ESCITALOPRAM [Suspect]
     Indication: ANXIETY DISORDER
     Dosage: (10 MG,1 D) ; (30 MG,1 D) ; (45 MG,1 D) ; (30 MG,1 D) ; (45 MG,1 D)
  3. ESCITALOPRAM [Suspect]
     Indication: ANXIETY DISORDER
     Dosage: (10 MG,1 D) ; (30 MG,1 D) ; (45 MG,1 D) ; (30 MG,1 D) ; (45 MG,1 D)
  4. CITALOPRAM HYDROBROMIDE [Suspect]
     Indication: ANXIETY DISORDER
     Dosage: (20 MG,1 D)

REACTIONS (14)
  - URINARY RETENTION [None]
  - MATERNAL EXPOSURE DURING PREGNANCY [None]
  - THINKING ABNORMAL [None]
  - WEIGHT INCREASED [None]
  - ANXIETY [None]
  - PANIC ATTACK [None]
  - CRYING [None]
  - POOR QUALITY SLEEP [None]
  - INCREASED APPETITE [None]
  - URINARY HESITATION [None]
  - EMOTIONAL DISORDER [None]
  - DYSPNOEA [None]
  - PALPITATIONS [None]
  - DECREASED APPETITE [None]
